FAERS Safety Report 10206032 (Version 1)
Quarter: 2014Q2

REPORT INFORMATION
  Report Type: Spontaneous
  Country: US (occurrence: None)
  Receive Date: 20140528
  Receipt Date: 20140528
  Transmission Date: 20141212
  Serious: Yes (Death, Hospitalization)
  Sender: FDA-Public Use
  Company Number: None

PATIENT
  Age: 60 Year
  Sex: Female

DRUGS (2)
  1. PHENDIMETRAZINE 105MG [Suspect]
     Dosage: 1 IN A.M, TWICE DAILY, TAKEN BY MOUTH
     Route: 048
  2. PHENDIMETRAZIN 35MG [Suspect]
     Dosage: 1 AT LUNCH AND 1 AT DINNER, @LUNCH+ @ DINNER, TAKEN BY MOUTH
     Route: 048

REACTIONS (3)
  - Overdose [None]
  - Drug level increased [None]
  - Incorrect drug administration duration [None]
